FAERS Safety Report 7812605-6 (Version None)
Quarter: 2011Q4

REPORT INFORMATION
  Report Type: 
  Country: None (occurrence: None)
  Receive Date: 20111013
  Receipt Date: 20110810
  Transmission Date: 20120403
  Serious: No
  Sender: FDA-Public Use
  Company Number: US-NOVEN-11US002960

PATIENT
  Sex: Female

DRUGS (18)
  1. KLOR-CON [Concomitant]
     Dosage: 10 MG, UNK
  2. DICLOMINE                          /00015602/ [Concomitant]
     Indication: ABDOMINAL PAIN UPPER
  3. MULTIVITAMIN                       /00097801/ [Concomitant]
     Dosage: UNK
  4. FENTANYL [Suspect]
     Indication: PAIN
     Dosage: 75 UG, Q48H
     Route: 062
     Dates: start: 20090101
  5. NEXIUM [Concomitant]
     Indication: PRODUCT USED FOR UNKNOWN INDICATION
     Dosage: UNK
     Route: 048
  6. SYNTHROID [Concomitant]
     Indication: THYROID DISORDER
     Route: 048
  7. SPIRONOLACTONE [Concomitant]
  8. VITAMIN D [Concomitant]
     Dosage: UNK
  9. NASAL SOLUTION [Concomitant]
  10. BENAZEPRIL HYDROCHLORIDE [Concomitant]
     Indication: BLOOD PRESSURE
     Route: 048
  11. LIPITOR [Concomitant]
     Indication: BLOOD CHOLESTEROL
     Route: 048
  12. VITAMIN C                          /00008001/ [Concomitant]
     Dosage: UNK
  13. RITALIN [Concomitant]
     Dosage: UNK
  14. ALPRAZOLAM [Concomitant]
     Indication: DYSPHAGIA
     Dosage: UNK
  15. IBUPROFEN [Concomitant]
     Indication: PRODUCT USED FOR UNKNOWN INDICATION
     Dosage: UNK
     Route: 048
  16. PERCOCET [Concomitant]
     Indication: PRODUCT USED FOR UNKNOWN INDICATION
     Dosage: UNK
     Route: 048
  17. REGLAN [Concomitant]
     Indication: GASTRIC DISORDER
     Dosage: BID, WITH MEALS
  18. LORAZEPAM [Concomitant]
     Indication: DYSPHAGIA
     Dosage: UNK

REACTIONS (6)
  - DIZZINESS [None]
  - FAECAL INCONTINENCE [None]
  - INADEQUATE ANALGESIA [None]
  - NIGHT SWEATS [None]
  - SOMNOLENCE [None]
  - ASTHENIA [None]
